FAERS Safety Report 19274110 (Version 3)
Quarter: 2021Q3

REPORT INFORMATION
  Report Type: Spontaneous
  Country: US (occurrence: US)
  Receive Date: 20210519
  Receipt Date: 20210716
  Transmission Date: 20211014
  Serious: Yes (Other)
  Sender: FDA-Public Use
  Company Number: US-ENDO PHARMACEUTICALS INC-2021-004586

PATIENT
  Age: 63 Year
  Sex: Male
  Weight: 117.91 kg

DRUGS (12)
  1. XIAFLEX [Suspect]
     Active Substance: COLLAGENASE CLOSTRIDIUM HISTOLYTICUM
     Dosage: UNK UNKNOWN, SINGLE, CYCLE 1, INJECTION 2 (2ND PLAQUE)
     Route: 065
     Dates: start: 2021
  2. XIAFLEX [Suspect]
     Active Substance: COLLAGENASE CLOSTRIDIUM HISTOLYTICUM
     Indication: PEYRONIE^S DISEASE
     Dosage: UNK UNKNOWN, SINGLE, CYCLE 2, INJECTION 2 (2ND PLAQUE)
     Route: 065
     Dates: start: 20210506, end: 2021
  3. XIAFLEX [Suspect]
     Active Substance: COLLAGENASE CLOSTRIDIUM HISTOLYTICUM
     Dosage: UNK UNKNOWN, SINGLE, CYCLE 1, INJECTION 1 (1ST PLAQUE)
     Route: 065
     Dates: start: 20200706
  4. XIAFLEX [Suspect]
     Active Substance: COLLAGENASE CLOSTRIDIUM HISTOLYTICUM
     Dosage: UNK UNKNOWN, SINGLE, CYCLE 3, INJECTION 2 (1ST PLAQUE)
     Route: 065
  5. XIAFLEX [Suspect]
     Active Substance: COLLAGENASE CLOSTRIDIUM HISTOLYTICUM
     Dosage: UNK UNKNOWN, SINGLE, CYCLE 4, INJECTION 2 (1ST PLAQUE)
     Route: 065
  6. XIAFLEX [Suspect]
     Active Substance: COLLAGENASE CLOSTRIDIUM HISTOLYTICUM
     Dosage: UNK UNKNOWN, SINGLE, CYCLE 2, INJECTION 1 (1ST PLAQUE)
     Route: 065
  7. XIAFLEX [Suspect]
     Active Substance: COLLAGENASE CLOSTRIDIUM HISTOLYTICUM
     Dosage: UNK UNKNOWN, SINGLE, CYCLE 4, INJECTION 1 (1ST PLAQUE)
     Route: 065
  8. XIAFLEX [Suspect]
     Active Substance: COLLAGENASE CLOSTRIDIUM HISTOLYTICUM
     Dosage: UNK UNKNOWN, SINGLE, CYCLE 2, INJECTION 1 (2ND PLAQUE)
     Route: 065
     Dates: start: 2021
  9. XIAFLEX [Suspect]
     Active Substance: COLLAGENASE CLOSTRIDIUM HISTOLYTICUM
     Dosage: UNK UNKNOWN, SINGLE, CYCLE 2, INJECTION 2 (1ST PLAQUE)
     Route: 065
  10. XIAFLEX [Suspect]
     Active Substance: COLLAGENASE CLOSTRIDIUM HISTOLYTICUM
     Dosage: UNK UNKNOWN, SINGLE, CYCLE 3, INJECTION 1 (1ST PLAQUE)
     Route: 065
  11. XIAFLEX [Suspect]
     Active Substance: COLLAGENASE CLOSTRIDIUM HISTOLYTICUM
     Dosage: UNK UNKNOWN, SINGLE, CYCLE 1, INJECTION 2 (1ST PLAQUE)
     Route: 065
  12. XIAFLEX [Suspect]
     Active Substance: COLLAGENASE CLOSTRIDIUM HISTOLYTICUM
     Dosage: UNK UNKNOWN, SINGLE, CYCLE 1, INJECTION 1 (2ND PLAQUE)
     Route: 065
     Dates: start: 20210315

REACTIONS (6)
  - Back pain [Recovered/Resolved]
  - Pain in extremity [Unknown]
  - Seizure [Recovered/Resolved]
  - Neck pain [Recovered/Resolved]
  - Arthralgia [Recovered/Resolved]
  - Muscle spasms [Recovered/Resolved]

NARRATIVE: CASE EVENT DATE: 2021
